FAERS Safety Report 5490922-5 (Version None)
Quarter: 2007Q4

REPORT INFORMATION
  Report Type: 
  Country: None (occurrence: None)
  Receive Date: 20071019
  Receipt Date: 20071009
  Transmission Date: 20080405
  Serious: Yes (Death, Life-Threatening, Hospitalization)
  Sender: FDA-Public Use
  Company Number: US-AMGEN-US247528

PATIENT
  Age: 68 Year
  Sex: Female
  Weight: 59.9 kg

DRUGS (16)
  1. VECTIBIX [Suspect]
     Indication: COLORECTAL CANCER
     Route: 042
     Dates: start: 20070529, end: 20070814
  2. POTASSIUM CHLORIDE [Concomitant]
     Route: 065
  3. NORVASC [Concomitant]
     Route: 065
  4. REGLAN [Concomitant]
     Route: 065
  5. PREDNISONE [Concomitant]
     Route: 065
  6. PLAQUENIL [Concomitant]
     Route: 065
  7. SYNTHROID [Concomitant]
     Route: 065
  8. OXYCODONE HCL [Concomitant]
     Route: 065
  9. NEXIUM [Concomitant]
     Route: 065
  10. CELEBREX [Concomitant]
     Route: 065
  11. REQUIP [Concomitant]
     Route: 065
  12. PULMICORT [Concomitant]
     Route: 065
  13. ZOFRAN [Concomitant]
     Route: 065
  14. PHENERGAN HCL [Concomitant]
     Route: 065
  15. DECADRON [Concomitant]
     Route: 065
  16. CAMPTOSAR [Concomitant]
     Route: 065
     Dates: start: 20070529, end: 20070814

REACTIONS (6)
  - ATRIAL FIBRILLATION [None]
  - HYPOTENSION [None]
  - LUNG INFILTRATION [None]
  - PYREXIA [None]
  - RESPIRATORY FAILURE [None]
  - SEPSIS [None]
